FAERS Safety Report 8354083-7 (Version None)
Quarter: 2012Q2

REPORT INFORMATION
  Report Type: 
  Country: None (occurrence: None)
  Receive Date: 20120511
  Receipt Date: 20120504
  Transmission Date: 20120825
  Serious: Yes (Other)
  Sender: FDA-Public Use
  Company Number: US-ABBOTT-12P-163-0932769-00

PATIENT
  Sex: Female

DRUGS (2)
  1. HUMIRA [Suspect]
     Dates: start: 20120401
  2. HUMIRA [Suspect]
     Indication: CROHN'S DISEASE
     Dates: start: 20120201

REACTIONS (5)
  - DIZZINESS [None]
  - OEDEMA PERIPHERAL [None]
  - MIGRAINE [None]
  - FEELING ABNORMAL [None]
  - BIOPSY BREAST [None]
